FAERS Safety Report 7496164-6 (Version None)
Quarter: 2011Q2

REPORT INFORMATION
  Report Type: 
  Country: None (occurrence: None)
  Receive Date: 20110523
  Receipt Date: 20110509
  Transmission Date: 20111010
  Serious: Yes (Hospitalization, Other)
  Sender: FDA-Public Use
  Company Number: PHEH2007US15445

PATIENT
  Sex: Female

DRUGS (80)
  1. ANTINEOPLASTIC AGENTS [Concomitant]
  2. DESIPRAMIDE HCL [Concomitant]
     Dosage: 10 MG
  3. ROXICODONE [Concomitant]
     Dosage: 5 MG / AS NEEDED
  4. CYTOXAN [Concomitant]
     Dosage: UNK
  5. CIPROFLOXACIN [Concomitant]
  6. RADIATION THERAPY [Concomitant]
  7. ZOLOFT [Concomitant]
     Dosage: 50 MG / TWICE DAILY
  8. OXYCODONE HCL AND ACETAMINOPHEN [Concomitant]
  9. PANTOPRAZOLE [Concomitant]
     Dosage: 40 MG / DAILY
  10. ZOCOR [Concomitant]
     Dosage: 40 MG / TWICE DAILY
  11. PAMIDRONATE DISODIUM [Concomitant]
     Dosage: UNK
  12. ROXICET [Concomitant]
     Dosage: UNK
  13. GABAPENTIN [Concomitant]
     Dosage: 100 / T.I.D.
  14. QUININE SULFATE [Concomitant]
     Indication: MUSCLE SPASMS
     Dosage: 260 MG/ AS NEEDED
     Route: 048
  15. PRAVASTATIN SODIUM [Concomitant]
  16. FUROSEMIDE [Concomitant]
  17. FEXOFENADINE HCL [Concomitant]
  18. NITROFURANTOIN [Concomitant]
  19. OXYCONTIN [Concomitant]
  20. VALTREX [Concomitant]
  21. ARANESP [Concomitant]
  22. ASPIRIN [Concomitant]
     Dosage: 81 MG / DAILY
  23. LIPITOR [Concomitant]
     Dosage: 40 MG / PM
  24. RESTORIL [Concomitant]
     Dosage: 1.5 MG / EVERY NIGHT AT BEDTIME
  25. NOVOLIN 70/30 [Concomitant]
  26. IPRATROPIUM BROMIDE [Concomitant]
  27. POTASSIUM CHLORIDE [Concomitant]
  28. PRAVACHOL [Concomitant]
  29. POTASSIUM CHLORIDE [Concomitant]
     Dosage: 10 MG / DAILY
  30. RANITIDINE [Concomitant]
     Dosage: 150 MG / DAILY
  31. VALIUM [Concomitant]
     Dosage: UNK
  32. PROCRIT                            /00909301/ [Concomitant]
     Dosage: UNK / EVERY 2 WEEKS
  33. ALENDRONATE SODIUM [Concomitant]
  34. THALIDOMIDE [Concomitant]
     Dosage: UNK
  35. DEPO-MEDROL [Concomitant]
     Dosage: UNK
  36. CEFUROXIME [Concomitant]
  37. PREDNISONE [Concomitant]
  38. REVLIMID [Concomitant]
     Dosage: UNK
     Dates: end: 20070701
  39. OMEPRAZOLE [Concomitant]
  40. XANAX [Concomitant]
  41. MORPHINE SULFATE [Concomitant]
     Dosage: 60 MG / TWICE DAILY
  42. NITROFURAN [Concomitant]
     Dosage: 100 MG / TWICE DAILY
  43. TEQUIN [Concomitant]
     Dosage: 400 MG / DAILY
  44. DECADRON [Concomitant]
     Dosage: UNK
  45. ATIVAN [Concomitant]
     Dosage: 1 MG / TWICE DAILY
  46. ZOLEDRONIC ACID [Concomitant]
     Dosage: UNK
  47. PROMETHAZINE [Concomitant]
  48. COMPRO [Concomitant]
  49. LORATADINE [Concomitant]
  50. AREDIA [Suspect]
  51. HYDROCHLOROTHIAZIDE [Concomitant]
  52. LORAZEPAM [Concomitant]
     Dosage: 7 MG / AS NEEDED
  53. PHENERGAN VC [Concomitant]
     Dosage: UNK
  54. K-DUR [Concomitant]
     Dosage: 20 MG/ 3 X DAY FOR 2 DAYS, THEN BID
  55. VELCADE [Concomitant]
     Dosage: UNK
     Route: 042
  56. ATENOLOL [Concomitant]
     Dosage: 50 MG / DAILY
  57. PRINZIDE [Concomitant]
     Dosage: 10/12.5 / DAILY
  58. REQUIP [Concomitant]
  59. LISINOPRIL [Concomitant]
  60. PRAVASTATIN [Concomitant]
     Dosage: 80 MG / DAILY
  61. ZETIA [Concomitant]
     Dosage: 10 MG / DAILY
  62. OXYCODONE HCL [Concomitant]
     Dosage: 40 MG / TWICE DAILY
  63. ZITHROMAX [Concomitant]
     Dosage: UNK
  64. ZANTAC [Concomitant]
     Dosage: UNK
  65. ACYCLOVIR [Concomitant]
     Dosage: 800 MG / 5 X DAILY FOR 5 DAYS
     Route: 048
  66. NEURONTIN [Concomitant]
     Dosage: 300 MG /T.I.D.
     Route: 048
  67. ALEVE [Concomitant]
     Dosage: UNK
  68. ROPINIROLE HYDROCHLORIDE [Concomitant]
  69. ZOMETA [Suspect]
  70. ZOLOFT [Concomitant]
     Dosage: 100 MG /  DAILY
  71. TEMAZ [Concomitant]
  72. PROTONIX [Concomitant]
  73. PERCOCET [Concomitant]
  74. DEXAMETHASONE [Concomitant]
  75. CYMBALTA [Concomitant]
     Dosage: 30 MG
  76. GLYBURIDE [Concomitant]
     Dosage: 5 MG / DAILY BEFORE NOON
  77. STEROIDS NOS [Concomitant]
     Dosage: 20 MG
  78. DILAUDID [Concomitant]
     Indication: PAIN
     Dosage: 2 MG / 1 OR 2 TABS EVERY 2 HRS, PRN
  79. SERTRALINE HYDROCHLORIDE [Concomitant]
  80. LEVAQUIN [Concomitant]

REACTIONS (43)
  - THROMBOCYTOPENIA [None]
  - INTERVERTEBRAL DISC DISORDER [None]
  - PAIN [None]
  - PAIN IN EXTREMITY [None]
  - FALL [None]
  - SPINAL DISORDER [None]
  - BONE DISORDER [None]
  - OSTEOMYELITIS [None]
  - DIABETES MELLITUS [None]
  - PARAESTHESIA [None]
  - WEIGHT INCREASED [None]
  - NEUROFIBROMA [None]
  - SPLENOMEGALY [None]
  - RADICULAR PAIN [None]
  - TRACHEOBRONCHITIS [None]
  - OSTEONECROSIS OF JAW [None]
  - FACIAL PAIN [None]
  - GROIN PAIN [None]
  - MYALGIA [None]
  - JOINT EFFUSION [None]
  - ONYCHALGIA [None]
  - LEUKOPENIA [None]
  - PNEUMONIA [None]
  - INJURY [None]
  - ANXIETY [None]
  - MULTIPLE MYELOMA [None]
  - LUMBAR VERTEBRAL FRACTURE [None]
  - ANAEMIA [None]
  - BONE MARROW FAILURE [None]
  - SPINAL OSTEOARTHRITIS [None]
  - SPINAL COLUMN STENOSIS [None]
  - CARDIAC FAILURE CONGESTIVE [None]
  - BIOPSY BONE MARROW ABNORMAL [None]
  - NEUROPATHY PERIPHERAL [None]
  - ONYCHOMYCOSIS [None]
  - PLASMACYTOMA [None]
  - PLASMACYTOSIS [None]
  - TENDON DISORDER [None]
  - DENTAL CARIES [None]
  - DYSPHONIA [None]
  - BACK PAIN [None]
  - ARTHRALGIA [None]
  - NAIL DYSTROPHY [None]
